FAERS Safety Report 12904260 (Version 3)
Quarter: 2016Q4

REPORT INFORMATION
  Report Type: Report from Study
  Country: US (occurrence: US)
  Receive Date: 20161102
  Receipt Date: 20161215
  Transmission Date: 20170207
  Serious: Yes (Hospitalization)
  Sender: FDA-Public Use
  Company Number: US-SA-2016SA197647

PATIENT
  Age: 42 Year
  Sex: Female

DRUGS (3)
  1. AUBAGIO [Concomitant]
     Active Substance: TERIFLUNOMIDE
     Route: 048
     Dates: start: 20140826, end: 20161021
  2. AUBAGIO [Concomitant]
     Active Substance: TERIFLUNOMIDE
     Dates: start: 20161028
  3. LEMTRADA [Suspect]
     Active Substance: ALEMTUZUMAB
     Indication: MULTIPLE SCLEROSIS
     Route: 041
     Dates: start: 20161024, end: 20161024

REACTIONS (10)
  - Headache [Unknown]
  - Depression [Recovered/Resolved]
  - Gait disturbance [Recovered/Resolved]
  - Musculoskeletal disorder [Unknown]
  - Feeling abnormal [Recovered/Resolved]
  - Hypersensitivity [Not Recovered/Not Resolved]
  - Thinking abnormal [Unknown]
  - Dizziness [Unknown]
  - Hand fracture [Unknown]
  - Fall [Recovered/Resolved]

NARRATIVE: CASE EVENT DATE: 20161024
